FAERS Safety Report 12488734 (Version 2)
Quarter: 2016Q3

REPORT INFORMATION
  Report Type: Spontaneous
  Country: GB (occurrence: GB)
  Receive Date: 20160622
  Receipt Date: 20160725
  Transmission Date: 20161109
  Serious: Yes (Hospitalization)
  Sender: FDA-Public Use
  Company Number: GB-CONCORDIA PHARMACEUTICALS INC.-GSH201606-003135

PATIENT
  Age: 79 Year
  Sex: Male

DRUGS (6)
  1. IRBESARTAN. [Concomitant]
     Active Substance: IRBESARTAN
  2. NOVORAPID [Concomitant]
     Active Substance: INSULIN ASPART
  3. PREDNISOLONE. [Suspect]
     Active Substance: PREDNISOLONE
     Indication: CHRONIC OBSTRUCTIVE PULMONARY DISEASE
     Route: 048
     Dates: start: 20160601, end: 20160608
  4. LANTUS [Concomitant]
     Active Substance: INSULIN GLARGINE
  5. RAMIPRIL. [Concomitant]
     Active Substance: RAMIPRIL
  6. AMLODIPINE [Concomitant]
     Active Substance: AMLODIPINE BESYLATE

REACTIONS (3)
  - Upper gastrointestinal haemorrhage [Recovering/Resolving]
  - Faeces discoloured [Recovering/Resolving]
  - Haematemesis [Recovering/Resolving]

NARRATIVE: CASE EVENT DATE: 20160605
